FAERS Safety Report 5617394-1 (Version None)
Quarter: 2008Q1

REPORT INFORMATION
  Report Type: 
  Country: None (occurrence: None)
  Receive Date: 20080207
  Receipt Date: 20070810
  Transmission Date: 20080703
  Serious: No
  Sender: FDA-Public Use
  Company Number: A0669490A

PATIENT
  Sex: Male

DRUGS (2)
  1. PAXIL [Suspect]
     Indication: DEPRESSION
     Route: 048
     Dates: start: 20070804, end: 20070804
  2. NO CONCURRENT MEDICATION [Concomitant]

REACTIONS (4)
  - CONFUSIONAL STATE [None]
  - COORDINATION ABNORMAL [None]
  - DIARRHOEA [None]
  - DRY MOUTH [None]
